FAERS Safety Report 24753557 (Version 3)
Quarter: 2025Q1

REPORT INFORMATION
  Report Type: Spontaneous
  Country: LV (occurrence: LV)
  Receive Date: 20241219
  Receipt Date: 20250116
  Transmission Date: 20250409
  Serious: Yes (Other)
  Sender: PFIZER
  Company Number: LV-NOVOPROD-1329061

PATIENT
  Age: 64 Year
  Sex: Female

DRUGS (15)
  1. RITUXIMAB [Suspect]
     Active Substance: RITUXIMAB
     Indication: Acquired haemophilia
     Dosage: 700 MG, WEEKLY, (375MG/M2) (4 TIMES, 1 MAINTENANCE DOSE) WAS STARTED
     Route: 042
     Dates: start: 20240802
  2. NOVOSEVEN [Suspect]
     Active Substance: COAGULATION FACTOR VIIA RECOMBINANT HUMAN
     Indication: Acquired haemophilia
     Dosage: 6 MG, 4X/DAY, (90MCG/KG)
     Route: 042
     Dates: start: 20240710
  3. NOVOSEVEN [Suspect]
     Active Substance: COAGULATION FACTOR VIIA RECOMBINANT HUMAN
     Indication: Acquired haemophilia
     Dosage: 6 MG, 4X/DAY, (90MCG/KG)
     Route: 042
     Dates: start: 20240710
  4. PREDNISOLONE [Suspect]
     Active Substance: PREDNISOLONE
     Route: 048
     Dates: start: 20240718
  5. CYCLOPHOSPHAMIDE [Suspect]
     Active Substance: CYCLOPHOSPHAMIDE
     Route: 048
     Dates: start: 20240718
  6. CYCLOPHOSPHAMIDE [Suspect]
     Active Substance: CYCLOPHOSPHAMIDE
     Route: 048
  7. DESMOPRESSIN ACETATE [Suspect]
     Active Substance: DESMOPRESSIN ACETATE
  8. TRANEXAMIC ACID [Suspect]
     Active Substance: TRANEXAMIC ACID
  9. PIPERACILLIN SODIUM\TAZOBACTAM SODIUM [Suspect]
     Active Substance: PIPERACILLIN SODIUM\TAZOBACTAM SODIUM
  10. MEROPENEM [Suspect]
     Active Substance: MEROPENEM
  11. METOPROLOL [Suspect]
     Active Substance: METOPROLOL
     Indication: Cardiovascular event prophylaxis
  12. SPIRONOLACTONE [Suspect]
     Active Substance: SPIRONOLACTONE
     Indication: Cardiovascular event prophylaxis
  13. TORSEMIDE [Suspect]
     Active Substance: TORSEMIDE
     Indication: Cardiovascular event prophylaxis
  14. DIGOXIN [Suspect]
     Active Substance: DIGOXIN
     Indication: Cardiovascular event prophylaxis
  15. FRESH FROZEN PLASMA [Concomitant]
     Active Substance: HUMAN PLASMA

REACTIONS (10)
  - Toxic skin eruption [Unknown]
  - Arterial haemorrhage [Unknown]
  - Pneumonia [Unknown]
  - Puncture site haematoma [Unknown]
  - Pneumocystis jirovecii pneumonia [Unknown]
  - Thrombosis [Unknown]
  - Extravasation [Unknown]
  - Urinary tract disorder [Unknown]
  - Haemorrhagic disorder [Unknown]
  - Puncture site haemorrhage [Unknown]

NARRATIVE: CASE EVENT DATE: 20240711
